FAERS Safety Report 8101078-4 (Version None)
Quarter: 2012Q1

REPORT INFORMATION
  Report Type: 
  Country: None (occurrence: None)
  Receive Date: 20120129
  Receipt Date: 20110906
  Transmission Date: 20120608
  Serious: No
  Sender: FDA-Public Use
  Company Number: US-ABBOTT-11P-163-0852730-00

PATIENT
  Sex: Female
  Weight: 86.26 kg

DRUGS (2)
  1. HUMIRA [Suspect]
     Indication: PSORIASIS
     Route: 058
     Dates: start: 20090512
  2. ALLEGRA [Concomitant]
     Indication: SEASONAL ALLERGY

REACTIONS (7)
  - OROPHARYNGEAL BLISTERING [None]
  - PRURITUS [None]
  - APHTHOUS STOMATITIS [None]
  - OROPHARYNGEAL PAIN [None]
  - URTICARIA [None]
  - RASH [None]
  - DERMATITIS CONTACT [None]
